FAERS Safety Report 5020514-3 (Version None)
Quarter: 2006Q2

REPORT INFORMATION
  Report Type: 
  Country: None (occurrence: None)
  Receive Date: 20060607
  Receipt Date: 20060517
  Transmission Date: 20061013
  Serious: Yes (Disabling)
  Sender: FDA-Public Use
  Company Number: GB-AVENTIS-200615622GDDC

PATIENT
  Age: 64 Year
  Sex: Male

DRUGS (6)
  1. LANTUS [Suspect]
     Indication: DIABETES MELLITUS
     Dates: start: 20050901
  2. GLIMEPIRIDE [Concomitant]
     Indication: DIABETES MELLITUS
  3. LANSOPRAZOLE [Concomitant]
     Indication: GASTROOESOPHAGEAL REFLUX DISEASE
  4. SIMVASTATIN [Concomitant]
     Indication: BLOOD CHOLESTEROL
  5. ISOSORBIDE MONO [Concomitant]
  6. DOXAZOSIN [Concomitant]
     Indication: BLOOD PRESSURE

REACTIONS (1)
  - WEIGHT INCREASED [None]
